FAERS Safety Report 19084440 (Version 1)
Quarter: 2021Q2

REPORT INFORMATION
  Report Type: Spontaneous
  Country: US (occurrence: US)
  Receive Date: 20210401
  Receipt Date: 20210401
  Transmission Date: 20210717
  Serious: No
  Sender: FDA-Public Use
  Company Number: US-SA-2021SA099414

PATIENT
  Sex: Female

DRUGS (1)
  1. ALLEGRA?D 24 HOUR [Suspect]
     Active Substance: FEXOFENADINE HYDROCHLORIDE\PSEUDOEPHEDRINE HYDROCHLORIDE
     Indication: HYPERSENSITIVITY
     Dosage: DRUG INTERVAL DOSAGE : 1 TIME A DAY

REACTIONS (5)
  - Tremor [Unknown]
  - Dizziness [Unknown]
  - Malaise [Unknown]
  - Insomnia [Unknown]
  - Disorientation [Unknown]
